FAERS Safety Report 5792110-1 (Version None)
Quarter: 2008Q2

REPORT INFORMATION
  Report Type: 
  Country: None (occurrence: None)
  Receive Date: 20080626
  Receipt Date: 20080222
  Transmission Date: 20081010
  Serious: No
  Sender: FDA-Public Use
  Company Number: US-ASTRAZENECA-2008UW03757

PATIENT
  Age: 69 Year
  Sex: Female
  Weight: 88.9 kg

DRUGS (3)
  1. PULMICORT FLEXHALER [Suspect]
     Indication: RESPIRATORY DISORDER
     Route: 055
     Dates: start: 20080201
  2. SINGULAIR [Concomitant]
  3. ALEVE [Concomitant]

REACTIONS (4)
  - DYSPEPSIA [None]
  - DYSPHONIA [None]
  - GASTROOESOPHAGEAL REFLUX DISEASE [None]
  - OESOPHAGEAL DISCOMFORT [None]
